FAERS Safety Report 4847976-6 (Version None)
Quarter: 2005Q4

REPORT INFORMATION
  Report Type: 
  Country: None (occurrence: None)
  Receive Date: 20051206
  Receipt Date: 20051206
  Transmission Date: 20060501
  Serious: Yes (Life-Threatening, Hospitalization, Disabling, Other)
  Sender: FDA-Public Use
  Company Number: None

PATIENT
  Age: 9 Year
  Sex: Female
  Weight: 26.7622 kg

DRUGS (3)
  1. MAGNEVIST [Suspect]
     Indication: NUCLEAR MAGNETIC RESONANCE IMAGING
     Dosage: IV
     Route: 042
  2. MAGNEVIST [Suspect]
     Indication: SCAN WITH CONTRAST
     Dosage: IV
     Route: 042
  3. PROHANCE [Suspect]

REACTIONS (3)
  - ANAPHYLACTIC REACTION [None]
  - CONTRAST MEDIA REACTION [None]
  - DRUG HYPERSENSITIVITY [None]
